FAERS Safety Report 12854563 (Version 3)
Quarter: 2016Q4

REPORT INFORMATION
  Report Type: Report from Study
  Country: None (occurrence: CA)
  Receive Date: 20161017
  Receipt Date: 20161101
  Transmission Date: 20170207
  Serious: Yes (Hospitalization, Other)
  Sender: FDA-Public Use
  Company Number: CA-ABBVIE-16P-028-1749038-00

PATIENT
  Age: 45 Year
  Sex: Female
  Weight: 90.8 kg

DRUGS (1)
  1. HUMIRA [Suspect]
     Active Substance: ADALIMUMAB
     Indication: ANKYLOSING SPONDYLITIS
     Route: 058
     Dates: start: 20150731, end: 2016

REACTIONS (7)
  - Vomiting [Recovering/Resolving]
  - Cholesteatoma [Recovering/Resolving]
  - Ankylosing spondylitis [Not Recovered/Not Resolved]
  - Fistula [Recovering/Resolving]
  - Balance disorder [Recovering/Resolving]
  - Cystitis [Not Recovered/Not Resolved]
  - Procedural complication [Recovering/Resolving]

NARRATIVE: CASE EVENT DATE: 201609
